FAERS Safety Report 4585075-1 (Version None)
Quarter: 2005Q1

REPORT INFORMATION
  Report Type: 
  Country: None (occurrence: None)
  Receive Date: 20050217
  Receipt Date: 20041221
  Transmission Date: 20050727
  Serious: No
  Sender: FDA-Public Use
  Company Number: US-GLAXOSMITHKLINE-A0538235A

PATIENT
  Age: 66 Year
  Sex: Male

DRUGS (18)
  1. WELLBUTRIN XL [Suspect]
     Indication: ILL-DEFINED DISORDER
     Dosage: 150MG PER DAY
     Route: 048
     Dates: start: 20041221
  2. CASODEX [Concomitant]
  3. AMIODARONE HCL [Concomitant]
  4. LASIX [Concomitant]
  5. CARVEDILOL [Concomitant]
  6. LIPITOR [Concomitant]
  7. SYNTHROID [Concomitant]
  8. MAGNESIUM OXIDE [Concomitant]
  9. PLAVIX [Concomitant]
  10. AVAPRO [Concomitant]
  11. VITAMIN B-12 [Concomitant]
  12. SPIRONOLACTONE [Concomitant]
  13. ZETIA [Concomitant]
  14. PROZAC [Concomitant]
  15. GLIPIZIDE [Concomitant]
  16. MEGESTROL [Concomitant]
  17. ISOSORBIDE MONONITRATE [Concomitant]
  18. XANAX [Concomitant]

REACTIONS (1)
  - NAUSEA [None]
